FAERS Safety Report 13235503 (Version 1)
Quarter: 2017Q1

REPORT INFORMATION
  Report Type: Spontaneous
  Country: FR (occurrence: FR)
  Receive Date: 20170215
  Receipt Date: 20170215
  Transmission Date: 20170428
  Serious: Yes (Hospitalization)
  Sender: FDA-Public Use
  Company Number: FR-PFIZER INC-2017060177

PATIENT
  Age: 60 Year
  Sex: Female

DRUGS (6)
  1. VANCOMYCINE [Suspect]
     Active Substance: VANCOMYCIN
     Indication: INFECTION
     Dosage: 1.5 G, 1X/DAY
     Route: 042
     Dates: start: 20161215, end: 20161227
  2. KEPPRA [Concomitant]
     Active Substance: LEVETIRACETAM
     Dosage: 1000 MG, 1X/DAY
     Route: 048
     Dates: start: 20161219
  3. ORACILLINE /00001801/ [Suspect]
     Active Substance: PENICILLIN V
     Indication: INFECTION
     Dosage: 2 MILLION IU, DAILY
     Route: 048
     Dates: start: 20161207, end: 20161215
  4. COLISTINE [Suspect]
     Active Substance: COLISTIN
     Indication: INFECTION
     Dosage: 4.5 IU, 1X/DAY
     Route: 042
     Dates: start: 20161215, end: 20161230
  5. MEROPENEM ANHYDROUS [Suspect]
     Active Substance: MEROPENEM ANHYDROUS
     Indication: INFECTION
     Dosage: 3 G, 1X/DAY
     Route: 042
     Dates: start: 20161215, end: 20161229
  6. TYGACIL [Suspect]
     Active Substance: TIGECYCLINE
     Indication: INFECTION
     Dosage: 100 MG, 1X/DAY
     Route: 042
     Dates: start: 20161222, end: 20161229

REACTIONS (1)
  - Drug reaction with eosinophilia and systemic symptoms [Recovering/Resolving]

NARRATIVE: CASE EVENT DATE: 20170101
